FAERS Safety Report 9111986 (Version 1)
Quarter: 2013Q1

REPORT INFORMATION
  Report Type: Spontaneous
  Country: US (occurrence: US)
  Receive Date: 20130219
  Receipt Date: 20130219
  Transmission Date: 20140127
  Serious: No
  Sender: FDA-Public Use
  Company Number: US-BRISTOL-MYERS SQUIBB COMPANY-16401291

PATIENT
  Age: 33 Year
  Sex: Female

DRUGS (1)
  1. ORENCIA [Suspect]
     Indication: RHEUMATOID ARTHRITIS
     Dosage: 1 DF = 3 VIALS BY INFUSION, LAST INF: 13MAY12
     Route: 042

REACTIONS (4)
  - Pregnancy [Recovered/Resolved]
  - Hypotension [Unknown]
  - Nausea [Unknown]
  - Dizziness [Unknown]
